FAERS Safety Report 19409523 (Version 2)
Quarter: 2024Q1

REPORT INFORMATION
  Report Type: Spontaneous
  Country: US (occurrence: US)
  Receive Date: 20210614
  Receipt Date: 20240228
  Transmission Date: 20240410
  Serious: Yes (Other)
  Sender: FDA-Public Use
  Company Number: US-PURDUE-USA-2020-0228538

PATIENT
  Sex: Male

DRUGS (5)
  1. OXYCONTIN [Suspect]
     Active Substance: OXYCODONE HYDROCHLORIDE
     Indication: Pain
     Dosage: UNK
     Route: 048
  2. OXYCONTIN [Suspect]
     Active Substance: OXYCODONE HYDROCHLORIDE
     Dosage: 10 MILLIGRAM, BID (20 MILLIGRAM, DAILY)
     Route: 048
  3. OXYCONTIN [Suspect]
     Active Substance: OXYCODONE HYDROCHLORIDE
     Dosage: 365 MILLIGRAM, DAILY
     Route: 048
  4. OXYCONTIN [Suspect]
     Active Substance: OXYCODONE HYDROCHLORIDE
     Dosage: 360 MILLIGRAM, DAILY
     Route: 048
  5. OXYCONTIN [Suspect]
     Active Substance: OXYCODONE HYDROCHLORIDE
     Dosage: 80 MILLIGRAM
     Route: 048

REACTIONS (11)
  - Prescribed overdose [Unknown]
  - Drug dependence [Unknown]
  - Drug abuse [Unknown]
  - Impaired work ability [Unknown]
  - Emotional distress [Unknown]
  - General physical health deterioration [Not Recovered/Not Resolved]
  - Visual impairment [Unknown]
  - Impaired driving ability [Unknown]
  - Aphasia [Unknown]
  - Drug diversion [Unknown]
  - Drug ineffective [Unknown]
